FAERS Safety Report 6852663-9 (Version None)
Quarter: 2010Q3

REPORT INFORMATION
  Report Type: 
  Country: None (occurrence: None)
  Receive Date: 20100717
  Receipt Date: 20071120
  Transmission Date: 20110219
  Serious: Yes (Other)
  Sender: FDA-Public Use
  Company Number: US-PFIZER INC-2007099829

PATIENT
  Sex: Female
  Weight: 56.818 kg

DRUGS (10)
  1. CHANTIX [Suspect]
     Indication: SMOKING CESSATION THERAPY
     Dates: start: 20071101
  2. IBUPROFEN [Concomitant]
  3. HYDROCODONE [Concomitant]
  4. LEVOXYL [Concomitant]
  5. NEXIUM [Concomitant]
  6. TRAZODONE HYDROCHLORIDE [Concomitant]
  7. TIAZAC [Concomitant]
  8. CLONIDINE [Concomitant]
  9. PAROXETINE [Concomitant]
  10. AMBIEN [Concomitant]

REACTIONS (4)
  - ABDOMINAL PAIN UPPER [None]
  - DIARRHOEA [None]
  - MALAISE [None]
  - VOMITING [None]
